FAERS Safety Report 4661719-0 (Version None)
Quarter: 2005Q2

REPORT INFORMATION
  Report Type: 
  Country: None (occurrence: None)
  Receive Date: 20050513
  Receipt Date: 20041019
  Transmission Date: 20051028
  Serious: Yes (Hospitalization)
  Sender: FDA-Public Use
  Company Number: US-ROCHE-383715

PATIENT
  Age: 55 Year
  Sex: Male
  Weight: 62.6 kg

DRUGS (8)
  1. ENFUVIRTIDE [Suspect]
     Indication: HIV INFECTION
     Route: 058
     Dates: start: 20040928
  2. VALCYTE [Concomitant]
  3. DAPSONE [Concomitant]
  4. TRIZIVIR [Concomitant]
     Dates: start: 20040920
  5. VIREAD [Concomitant]
     Dates: start: 20040920
  6. VIRAMUNE [Concomitant]
     Dates: start: 20040920
  7. AVANDAMET [Concomitant]
     Dosage: TDD ALSO REPORTED AS 4/500.
  8. ZITHROMAX [Concomitant]

REACTIONS (4)
  - ANAEMIA [None]
  - ILEUS [None]
  - PNEUMONIA PRIMARY ATYPICAL [None]
  - SPLENIC INFARCTION [None]
